FAERS Safety Report 20338908 (Version 2)
Quarter: 2022Q1

REPORT INFORMATION
  Report Type: Spontaneous
  Country: US (occurrence: US)
  Receive Date: 20220116
  Receipt Date: 20220303
  Transmission Date: 20220424
  Serious: Yes (Hospitalization, Other)
  Sender: FDA-Public Use
  Company Number: US-BIOVITRUM-2022US00396

PATIENT
  Sex: Male
  Weight: 7 kg

DRUGS (2)
  1. SYNAGIS [Suspect]
     Active Substance: PALIVIZUMAB
     Indication: Premature baby
     Route: 030
     Dates: start: 202111
  2. SYNAGIS [Suspect]
     Active Substance: PALIVIZUMAB
     Indication: Chronic respiratory disease

REACTIONS (3)
  - Hernia [Unknown]
  - Cellulitis [Unknown]
  - Post procedural infection [Unknown]
